FAERS Safety Report 7209832-8 (Version None)
Quarter: 2011Q1

REPORT INFORMATION
  Report Type: 
  Country: None (occurrence: None)
  Receive Date: 20110104
  Receipt Date: 20101222
  Transmission Date: 20110831
  Serious: Yes (Other)
  Sender: FDA-Public Use
  Company Number: US-CELGENEUS-163-21880-10123159

PATIENT
  Sex: Female

DRUGS (14)
  1. REVLIMID [Suspect]
     Route: 048
     Dates: start: 20100701
  2. DEXAMETHASONE [Concomitant]
     Route: 065
  3. BENAZEPRIL [Concomitant]
     Route: 065
  4. WARFARIN [Concomitant]
     Route: 065
  5. DIGOXIN [Concomitant]
     Route: 065
  6. ENSURE PLUS [Concomitant]
     Route: 065
  7. LEVOTHYROXINE SODIUM [Concomitant]
     Route: 065
  8. IMODIUM A-D [Concomitant]
     Route: 065
  9. REVLIMID [Suspect]
     Indication: MULTIPLE MYELOMA
     Route: 048
     Dates: start: 20070801, end: 20070101
  10. REVLIMID [Suspect]
     Route: 048
     Dates: start: 20071001, end: 20100101
  11. CLARITHROMYC [Concomitant]
     Route: 065
  12. VICODIN [Concomitant]
     Dosage: 5-500MG
     Route: 065
  13. OMEPRAZOLE [Concomitant]
     Route: 065
  14. DIGOXIN [Concomitant]
     Route: 065

REACTIONS (1)
  - DIABETES MELLITUS [None]
